FAERS Safety Report 4559102-1 (Version None)
Quarter: 2005Q1

REPORT INFORMATION
  Report Type: 
  Country: None (occurrence: None)
  Receive Date: 20050120
  Receipt Date: 20050120
  Transmission Date: 20050727
  Serious: Yes (Hospitalization)
  Sender: FDA-Public Use
  Company Number: None

PATIENT
  Age: 48 Year
  Sex: Female
  Weight: 50.8029 kg

DRUGS (12)
  1. BC POWDERS [Suspect]
     Indication: HEADACHE
     Dosage: AT LEAST 2 PER DAY EXACT # UNKNOWN [RECENT]
  2. ADVAIR DISKUS 100/50 [Concomitant]
  3. LEXAPRO [Concomitant]
  4. PHENERGAN [Concomitant]
  5. VALIUM [Concomitant]
  6. SINGULAIR [Concomitant]
  7. ELAVIL [Concomitant]
  8. INDERAL LA [Concomitant]
  9. KCL TAB [Concomitant]
  10. NEXIUM [Concomitant]
  11. LEVAQUIN [Concomitant]
  12. OSCAL D [Concomitant]

REACTIONS (14)
  - ACCIDENTAL OVERDOSE [None]
  - ANION GAP INCREASED [None]
  - COAGULOPATHY [None]
  - DEPRESSED LEVEL OF CONSCIOUSNESS [None]
  - DRUG TOXICITY [None]
  - DYSARTHRIA [None]
  - HAEMOGLOBIN DECREASED [None]
  - INTRACRANIAL ANEURYSM [None]
  - MENTAL STATUS CHANGES [None]
  - METABOLIC ALKALOSIS [None]
  - NAUSEA [None]
  - SPEECH DISORDER [None]
  - SUBARACHNOID HAEMORRHAGE [None]
  - VOMITING [None]
